FAERS Safety Report 9595418 (Version 2)
Quarter: 2014Q1

REPORT INFORMATION
  Report Type: Spontaneous
  Country: US (occurrence: None)
  Receive Date: 20131002
  Receipt Date: 20140328
  Transmission Date: 20141002
  Serious: Yes (Disabling)
  Sender: FDA-Public Use
  Company Number: 2013-US-001380

PATIENT
  Age: 55 Year
  Sex: Female

DRUGS (5)
  1. XYREM [Suspect]
     Indication: NARCOLEPSY
     Route: 048
     Dates: start: 20080818
  2. KLONOPIN (CLONAZEPAM) (TABLETS) [Concomitant]
  3. WELLBUTRIN [Concomitant]
  4. LEXAPRO (ESCITALOPRAM OXALATE) [Suspect]
  5. ADDERALL [Concomitant]

REACTIONS (1)
  - Disability [None]
